FAERS Safety Report 5108667-X (Version None)
Quarter: 2006Q3

REPORT INFORMATION
  Report Type: 
  Country: None (occurrence: None)
  Receive Date: 20060915
  Receipt Date: 20060908
  Transmission Date: 20061208
  Serious: Yes (Hospitalization, Other)
  Sender: FDA-Public Use
  Company Number: GXKR2006GB05564

PATIENT
  Age: 72 Year
  Sex: Female

DRUGS (3)
  1. CO-AMOXICLAV (NGX) (AMOXICILLIN, CLAVULANATE) [Suspect]
     Indication: LOWER RESPIRATORY TRACT INFECTION
     Dosage: TID, ORAL
     Route: 048
     Dates: start: 20060712, end: 20060718
  2. ACYCLOVIR [Suspect]
     Indication: HERPES ZOSTER
     Dosage: 800 MG, 5QD, ORAL
     Route: 048
     Dates: start: 20060712, end: 20060718
  3. WARFARIN [Concomitant]

REACTIONS (2)
  - HAEMATOMA [None]
  - INTERNATIONAL NORMALISED RATIO INCREASED [None]
